FAERS Safety Report 5239203-5 (Version None)
Quarter: 2007Q1

REPORT INFORMATION
  Report Type: 
  Country: None (occurrence: None)
  Receive Date: 20061208
  Receipt Date: 20050912
  Transmission Date: 20070707
  Serious: Yes (Other)
  Sender: FDA-Public Use
  Company Number: 2005UW13471

PATIENT
  Age: 48 Year
  Sex: Male
  Weight: 95.254 kg

DRUGS (9)
  1. CRESTOR [Suspect]
     Indication: BLOOD CHOLESTEROL INCREASED
     Dosage: 10 MG QD PO
     Route: 048
  2. TRICOR [Concomitant]
  3. ADVIL [Concomitant]
  4. TOPROL-XL [Concomitant]
  5. PLAVIX [Concomitant]
  6. FOLIC ACID [Concomitant]
  7. CAPTOPRIL [Concomitant]
  8. ASACOL [Concomitant]
  9. ISOSORBIDE [Concomitant]

REACTIONS (4)
  - ARTHRALGIA [None]
  - BRONCHITIS [None]
  - COUGH [None]
  - GROIN PAIN [None]
